FAERS Safety Report 8182290-5 (Version None)
Quarter: 2012Q1

REPORT INFORMATION
  Report Type: 
  Country: None (occurrence: None)
  Receive Date: 20120302
  Receipt Date: 20120227
  Transmission Date: 20120608
  Serious: Yes (Hospitalization)
  Sender: FDA-Public Use
  Company Number: PHHY2010JP88350

PATIENT
  Sex: Male

DRUGS (18)
  1. EXJADE [Suspect]
     Dosage: 875 MG, DAILY
     Route: 048
     Dates: start: 20091007
  2. LANSOPRAZOLE [Concomitant]
     Dosage: 15 MG, UNK
     Route: 048
     Dates: start: 20091001, end: 20091224
  3. SOLU-CORTEF [Concomitant]
     Dosage: 100 MG, UNK
     Route: 048
     Dates: start: 20090912, end: 20090915
  4. PHENOBARBITAL TAB [Concomitant]
     Route: 048
     Dates: start: 20091001, end: 20091007
  5. LASIX [Concomitant]
     Dosage: 20 MG, UNK
     Route: 048
  6. MEROPENEM [Concomitant]
     Dosage: 2 G, UNK
     Dates: start: 20090912, end: 20090915
  7. SITAFLOXACIN HYDRATE [Concomitant]
     Dosage: 100 MG, UNK
     Route: 048
     Dates: start: 20090916, end: 20090928
  8. PRIMPERAN TAB [Concomitant]
     Dosage: 3 DF, UNK
     Route: 048
     Dates: start: 20090812, end: 20090911
  9. DOPAMINE HCL [Concomitant]
     Dosage: UNK
     Dates: start: 20090912, end: 20090915
  10. LASIX [Concomitant]
     Dosage: 20 MG, UNK
     Route: 048
     Dates: start: 20090624, end: 20091224
  11. MUCOSTA [Concomitant]
     Dosage: 300 MG, UNK
     Route: 048
     Dates: start: 20090624, end: 20090911
  12. TARGOCID [Concomitant]
     Dosage: 200 MG, UNK
     Dates: start: 20090912, end: 20090915
  13. PHENYTOIN SODIUM CAP [Concomitant]
     Dosage: 150 MG, UNK
     Route: 048
     Dates: start: 20091001, end: 20091007
  14. EXJADE [Suspect]
     Indication: MYELOFIBROSIS
     Dosage: 875 MG, DAILY
     Route: 048
     Dates: start: 20090729, end: 20090812
  15. PREDNISOLONE [Concomitant]
     Dosage: 10 MG, UNK
     Route: 048
     Dates: start: 20090624, end: 20091224
  16. URIEF [Concomitant]
     Dosage: 8 DF, UNK
     Route: 048
     Dates: start: 20090924, end: 20091007
  17. EXJADE [Suspect]
     Indication: IRON OVERLOAD
     Dosage: 875 MG, DAILY
     Route: 048
     Dates: start: 20090624, end: 20090722
  18. MAGNESIUM OXIDE [Concomitant]
     Dosage: 3 G, UNK
     Route: 048
     Dates: start: 20090708, end: 20090911

REACTIONS (3)
  - URINARY TRACT INFECTION [None]
  - WHITE BLOOD CELL COUNT INCREASED [None]
  - NAUSEA [None]
